FAERS Safety Report 14565820 (Version 2)
Quarter: 2018Q2

REPORT INFORMATION
  Report Type: Spontaneous
  Country: FR (occurrence: FR)
  Receive Date: 20180223
  Receipt Date: 20180531
  Transmission Date: 20180711
  Serious: Yes (Congenital Anomaly, Other)
  Sender: FDA-Public Use
  Company Number: FR-AUROBINDO-AUR-APL-2018-008969

PATIENT
  Sex: Male
  Weight: .61 kg

DRUGS (4)
  1. BARACLUDE [Suspect]
     Active Substance: ENTECAVIR
     Indication: FOETAL EXPOSURE DURING PREGNANCY
     Dosage: UNK
     Route: 064
     Dates: start: 20150101, end: 20150311
  2. ENTECAVIR. [Suspect]
     Active Substance: ENTECAVIR
     Indication: HEPATITIS B
     Dosage: 0.5 MILLIGRAM
     Route: 064
     Dates: start: 20111007, end: 20150311
  3. TENOFOVIR DISOPROXIL [Suspect]
     Active Substance: TENOFOVIR DISOPROXIL
     Indication: FOETAL EXPOSURE DURING PREGNANCY
     Dosage: ()
     Route: 064
     Dates: start: 20150311, end: 20150705
  4. EMTRICITABINE W/TENOFOVIR [Suspect]
     Active Substance: EMTRICITABINE\TENOFOVIR DISOPROXIL
     Indication: PRODUCT USED FOR UNKNOWN INDICATION
     Dosage: MATERNAL DOSE: 245 MG, QD
     Route: 064
     Dates: start: 20150311, end: 20150705

REACTIONS (5)
  - Foetal hypokinesia [Unknown]
  - Foetal cardiac disorder [Unknown]
  - Foetal heart rate abnormal [Unknown]
  - Foetal exposure during pregnancy [Unknown]
  - Neonatal respiratory distress [Unknown]

NARRATIVE: CASE EVENT DATE: 20150611
